FAERS Safety Report 23841682 (Version 1)
Quarter: 2024Q2

REPORT INFORMATION
  Report Type: Spontaneous
  Country: US (occurrence: None)
  Receive Date: 20240510
  Receipt Date: 20240510
  Transmission Date: 20240715
  Serious: No
  Sender: FDA-Public Use
  Company Number: 2024A092919

PATIENT

DRUGS (16)
  1. CRESTOR [Suspect]
     Active Substance: ROSUVASTATIN CALCIUM
     Indication: Blood cholesterol
     Route: 048
  2. CRESTOR [Suspect]
     Active Substance: ROSUVASTATIN CALCIUM
     Indication: Blood cholesterol
     Route: 048
  3. AMLODIPINE [Concomitant]
     Active Substance: AMLODIPINE BESYLATE
     Dosage: 1 TABLET BY MOUTH DAILY
     Route: 048
  4. ASPIRIN [Concomitant]
     Active Substance: ASPIRIN
     Dosage: 1 TABLET BY MOUTH DAILY
     Route: 048
  5. AZITHROMYCIN [Concomitant]
     Active Substance: AZITHROMYCIN
     Dosage: TAKE 2 TABLETS BY MOUTH ON DAY 1 , THEN 1 TAKE ONE TIME DAILY ON DAYS 2-5
     Route: 048
  6. CALCIUM VITAMIN [Concomitant]
     Dosage: 1 TAB BY MOUTH TWICE A DAY
     Route: 048
  7. CETRIZINE- AKA ZYRTEC [Concomitant]
     Dosage: 1 TABLET BY MOUTH DAILY AS NEEDED FOR ALLERGY SYMPTOMS
     Route: 048
  8. EZETIMIBE [Concomitant]
     Active Substance: EZETIMIBE
     Dosage: TAKE 1 TABLET BY MOUTH DAILY WITH OR WITHOUT FOOD
     Route: 048
  9. FEXOFENADINE - AKA ALLERGRA [Concomitant]
     Dosage: 1 TABLET BY MOUTH DAILY AS NEEDED FOR ALLERGY SYMPTOMS
     Route: 048
  10. FLUTICASONE PROPIONATE [Concomitant]
     Active Substance: FLUTICASONE PROPIONATE
     Dosage: USE 2 SPRAYS IN EACH NOSTRILS ONCE PER DAY (FOR ALLERGIES)
     Route: 055
  11. LORATADINE - AKA CLARITIN [Concomitant]
     Dosage: 1 TABLET BY MOUTH EVERDAY FOR ALLERGIES
     Route: 048
  12. VITAMINS [Concomitant]
     Active Substance: VITAMINS
     Dosage: 1 TABLET MWF
     Route: 048
  13. PATADAY [Concomitant]
     Active Substance: OLOPATADINE HYDROCHLORIDE
     Dosage: 1 DROP IN AFFECTED EYE ONE DAILY
  14. SODIUM BICARBONATE\SODIUM CHLORIDE [Concomitant]
     Active Substance: SODIUM BICARBONATE\SODIUM CHLORIDE
     Dosage: USE DAILY TWICE A DAY AS NEEDED
  15. TETRAHYDROZOLINE HYDROCHLORIDE [Concomitant]
     Active Substance: TETRAHYDROZOLINE HYDROCHLORIDE
     Dosage: 1 OR 2 DROPS IN AFFECTED EYE
  16. VITAMIN D3 [Concomitant]
     Active Substance: CHOLECALCIFEROL
     Dosage: 1 TABLET DAILY
     Route: 048

REACTIONS (3)
  - Arthralgia [Unknown]
  - Eye irritation [Unknown]
  - Pain in extremity [Unknown]

NARRATIVE: CASE EVENT DATE: 20231215
